FAERS Safety Report 25261574 (Version 1)
Quarter: 2025Q2

REPORT INFORMATION
  Report Type: Spontaneous
  Country: ES (occurrence: ES)
  Receive Date: 20250502
  Receipt Date: 20250502
  Transmission Date: 20250717
  Serious: Yes (Death, Other)
  Sender: AMGEN
  Company Number: ES-AMGEN-ESPSP2025081294

PATIENT

DRUGS (1)
  1. BEVACIZUMAB [Suspect]
     Active Substance: BEVACIZUMAB
     Indication: Hepatocellular carcinoma
     Route: 065

REACTIONS (23)
  - Adverse event [Fatal]
  - Death [Fatal]
  - Pancytopenia [Fatal]
  - Encephalitis [Fatal]
  - Myocarditis-myositis-myasthenia gravis overlap syndrome [Fatal]
  - Hepatic cirrhosis [Unknown]
  - Acute coronary syndrome [Unknown]
  - Hepatocellular carcinoma [Unknown]
  - Myocardial infarction [Unknown]
  - Cerebrovascular accident [Unknown]
  - Myocarditis [Unknown]
  - Skin disorder [Unknown]
  - Renal disorder [Unknown]
  - Cardiac disorder [Unknown]
  - Blood disorder [Unknown]
  - Gastrointestinal disorder [Unknown]
  - Angiopathy [Unknown]
  - Endocrine disorder [Unknown]
  - Hepatobiliary disease [Unknown]
  - Peripheral ischaemia [Unknown]
  - Drug intolerance [Unknown]
  - Neoplasm [Unknown]
  - Off label use [Unknown]
